FAERS Safety Report 5899441-5 (Version None)
Quarter: 2008Q3

REPORT INFORMATION
  Report Type: 
  Country: None (occurrence: None)
  Receive Date: 20080924
  Receipt Date: 20080908
  Transmission Date: 20090109
  Serious: Yes (Other)
  Sender: FDA-Public Use
  Company Number: 2008BI024160

PATIENT
  Age: 59 Year
  Sex: Female

DRUGS (1)
  1. TYSABRI [Suspect]
     Indication: MULTIPLE SCLEROSIS
     Dosage: 300 MG;QM;IV
     Route: 042
     Dates: start: 20080515

REACTIONS (5)
  - BREAST PAIN [None]
  - COGNITIVE DISORDER [None]
  - PARTIAL SEIZURES [None]
  - RED BLOOD CELL SEDIMENTATION RATE INCREASED [None]
  - VISUAL IMPAIRMENT [None]
